FAERS Safety Report 24808889 (Version 7)
Quarter: 2025Q3

REPORT INFORMATION
  Report Type: Report from Study
  Country: KR (occurrence: KR)
  Receive Date: 20250106
  Receipt Date: 20250915
  Transmission Date: 20251020
  Serious: Yes (Other)
  Sender: ALEXION PHARMACEUTICALS
  Company Number: KR-AstraZeneca-2024A207342

PATIENT
  Age: 69 Year
  Sex: Female
  Weight: 48 kg

DRUGS (32)
  1. OLAPARIB [Suspect]
     Active Substance: OLAPARIB
     Indication: Ovarian cancer
     Dosage: 300 MILLIGRAM, BID
     Dates: start: 20240702, end: 20240708
  2. OLAPARIB [Suspect]
     Active Substance: OLAPARIB
     Dosage: 250 MILLIGRAM, BID
     Dates: start: 20240722, end: 20240908
  3. OLAPARIB [Suspect]
     Active Substance: OLAPARIB
     Dosage: 150 MILLIGRAM, BID
     Dates: start: 20240930, end: 20241002
  4. OLAPARIB [Suspect]
     Active Substance: OLAPARIB
     Dates: start: 20250106, end: 20250313
  5. OLAPARIB [Suspect]
     Active Substance: OLAPARIB
     Dosage: 150 MILLIGRAM, BID
     Dates: start: 20250403, end: 20250409
  6. OLAPARIB [Suspect]
     Active Substance: OLAPARIB
     Dosage: 300 MILLIGRAM, BID
     Dates: start: 20250410
  7. CILOSTAZOL [Concomitant]
     Active Substance: CILOSTAZOL
     Indication: Cerebral artery stenosis
  8. ULTRACET [Concomitant]
     Active Substance: ACETAMINOPHEN\TRAMADOL HYDROCHLORIDE
     Indication: Urinary tract infection
  9. LAFUTIDINE [Concomitant]
     Active Substance: LAFUTIDINE
     Indication: Chronic gastritis
  10. MAGNESIUM OXIDE [Concomitant]
     Active Substance: MAGNESIUM OXIDE
     Indication: Urinary tract infection
     Route: 065
  11. FERROUS SULFATE\PROTEASE [Concomitant]
     Active Substance: FERROUS SULFATE\PROTEASE
     Indication: Thrombocytopenia
  12. LYRICA [Concomitant]
     Active Substance: PREGABALIN
     Indication: Transient ischaemic attack
  13. LIPITOR [Concomitant]
     Active Substance: ATORVASTATIN CALCIUM
     Indication: Cerebral artery stenosis
  14. Clopidogrel daewon [Concomitant]
     Indication: Transient ischaemic attack
     Route: 065
     Dates: start: 20240702, end: 20240802
  15. CEFTRIAXONE [Concomitant]
     Active Substance: CEFTRIAXONE
     Indication: Urinary tract infection
     Route: 065
     Dates: start: 20240705, end: 20240707
  16. DOXYCYCLINE [Concomitant]
     Active Substance: DOXYCYCLINE
     Indication: Urinary tract infection
     Route: 065
     Dates: start: 20240712, end: 20240715
  17. FERINJECT [Concomitant]
     Active Substance: FERRIC CARBOXYMALTOSE
     Indication: Thrombocytopenia
     Route: 065
     Dates: start: 20240909, end: 20240909
  18. Paceta [Concomitant]
     Indication: Urinary tract infection
     Route: 065
     Dates: start: 20240702, end: 20240716
  19. Paceta [Concomitant]
     Indication: Pyelonephritis acute
     Route: 065
     Dates: start: 20241002, end: 20241011
  20. Tazoperan [Concomitant]
     Indication: Urinary tract infection
     Route: 065
     Dates: start: 20240708, end: 20240711
  21. METOCLOPRAMIDE HYDROCHLORIDE [Concomitant]
     Active Substance: METOCLOPRAMIDE HYDROCHLORIDE
     Indication: Prophylaxis
     Route: 065
     Dates: start: 20240702, end: 20240722
  22. PANTOPRAZOLE SODIUM [Concomitant]
     Active Substance: PANTOPRAZOLE SODIUM
     Indication: Chronic gastritis
     Route: 065
     Dates: start: 20241009, end: 20241022
  23. ENOXAPARIN SODIUM [Concomitant]
     Active Substance: ENOXAPARIN SODIUM
     Indication: Endocarditis
     Route: 065
     Dates: start: 20241011, end: 20241014
  24. Ubactam [Concomitant]
     Indication: Endocarditis
     Route: 065
     Dates: start: 20241010, end: 20241011
  25. CALCIUM CARBONATE [Concomitant]
     Active Substance: CALCIUM CARBONATE
     Indication: Chronic gastritis
     Route: 065
     Dates: start: 20241007, end: 20241022
  26. ATORVASTATIN CALCIUM [Concomitant]
     Active Substance: ATORVASTATIN CALCIUM
     Indication: Cerebral artery stenosis
     Route: 065
     Dates: start: 20241007, end: 20241022
  27. MEROPENEM [Concomitant]
     Active Substance: MEROPENEM
     Indication: Endocarditis
     Route: 065
     Dates: start: 20241011, end: 20241022
  28. LASIX [Concomitant]
     Active Substance: FUROSEMIDE
     Indication: Pyelonephritis acute
     Route: 065
     Dates: start: 20241015, end: 20241022
  29. Tapocin [Concomitant]
     Indication: Endocarditis
     Route: 065
     Dates: start: 20241011, end: 20241022
  30. CARVEDILOL [Concomitant]
     Active Substance: CARVEDILOL
     Indication: Hypertension
     Route: 065
  31. Binicapin [Concomitant]
     Indication: Hypertension
     Route: 065
     Dates: start: 20241011, end: 20241013
  32. Sk albumin [Concomitant]
     Indication: Pancytopenia
     Route: 065
     Dates: start: 20241010, end: 20241014

REACTIONS (2)
  - Thrombocytopenia [Recovered/Resolved]
  - Anaemia [Recovered/Resolved]

NARRATIVE: CASE EVENT DATE: 20240909
